FAERS Safety Report 24415798 (Version 6)
Quarter: 2024Q4

REPORT INFORMATION
  Report Type: Spontaneous
  Country: US (occurrence: US)
  Receive Date: 20241009
  Receipt Date: 20241220
  Transmission Date: 20250114
  Serious: No
  Sender: PFIZER
  Company Number: US-PFIZER INC-202400269111

PATIENT
  Age: 15 Year
  Sex: Male
  Weight: 70.31 kg

DRUGS (2)
  1. GENOTROPIN [Suspect]
     Active Substance: SOMATROPIN
     Indication: Short stature
     Dosage: 1.8 MG, ALTERNATE DAY ((TAKES EVERY DAY, ALTERNATES DOSE OF 1.8 MG ONE DAY AND, NEXT DAY 2.0 MG)
     Dates: start: 2022
  2. GENOTROPIN [Suspect]
     Active Substance: SOMATROPIN
     Dosage: 2.0 MG, ALTERNATE DAY (TAKES EVERY DAY, ALTERNATES DOSE OF 1.8 MG ONE DAY AND, NEXT DAY 2.0 MG)
     Dates: start: 2022

REACTIONS (7)
  - Device use error [Unknown]
  - Incorrect dose administered by device [Unknown]
  - Device information output issue [Unknown]
  - Device leakage [Unknown]
  - Device breakage [Unknown]
  - Device use issue [Unknown]
  - Device delivery system issue [Unknown]

NARRATIVE: CASE EVENT DATE: 20240101
